FAERS Safety Report 6635931-5 (Version None)
Quarter: 2010Q1

REPORT INFORMATION
  Report Type: 
  Country: None (occurrence: None)
  Receive Date: 20100225
  Receipt Date: 20090706
  Transmission Date: 20100710
  Serious: Yes (Hospitalization)
  Sender: FDA-Public Use
  Company Number: US-JNJFOC-20090702577

PATIENT
  Age: 46 Year
  Sex: Male
  Weight: 129.2752 kg

DRUGS (1)
  1. IBUPROFEN [Suspect]
     Indication: OSTEOARTHRITIS

REACTIONS (1)
  - ULCER HAEMORRHAGE [None]
